FAERS Safety Report 17002265 (Version 1)
Quarter: 2019Q4

REPORT INFORMATION
  Report Type: Spontaneous
  Country: AU (occurrence: AU)
  Receive Date: 20191106
  Receipt Date: 20191106
  Transmission Date: 20200122
  Serious: Yes (Other)
  Sender: FDA-Public Use
  Company Number: NVSC2019AU024868

PATIENT
  Age: 60 Year
  Sex: Female

DRUGS (4)
  1. TAMOXIFEN [Suspect]
     Active Substance: TAMOXIFEN
     Indication: PRODUCT USED FOR UNKNOWN INDICATION
     Dosage: UNK
     Route: 065
  2. LETROZOLE. [Suspect]
     Active Substance: LETROZOLE
     Indication: PRODUCT USED FOR UNKNOWN INDICATION
     Dosage: UNK
     Route: 065
  3. DEXAMETHASONE. [Suspect]
     Active Substance: DEXAMETHASONE
     Indication: PRODUCT USED FOR UNKNOWN INDICATION
     Dosage: UNK
     Route: 065
  4. RIBOCICLIB. [Suspect]
     Active Substance: RIBOCICLIB
     Indication: PRODUCT USED FOR UNKNOWN INDICATION
     Dosage: UNK
     Route: 065

REACTIONS (13)
  - Metastases to liver [Unknown]
  - Carbohydrate antigen 15-3 increased [Unknown]
  - Lymphadenopathy [Unknown]
  - Weight decreased [Unknown]
  - Blood alkaline phosphatase abnormal [Unknown]
  - Decreased appetite [Unknown]
  - Chest pain [Unknown]
  - Nausea [Unknown]
  - Fatigue [Unknown]
  - Gamma-glutamyltransferase increased [Unknown]
  - Abdominal pain upper [Unknown]
  - Alanine aminotransferase abnormal [Unknown]
  - Anxiety [Unknown]
